FAERS Safety Report 5402064-5 (Version None)
Quarter: 2007Q3

REPORT INFORMATION
  Report Type: 
  Country: None (occurrence: None)
  Receive Date: 20070727
  Receipt Date: 20070716
  Transmission Date: 20080115
  Serious: Yes (Life-Threatening)
  Sender: FDA-Public Use
  Company Number: ADE07007-L

PATIENT

DRUGS (4)
  1. CYCLOSPORINE [Suspect]
     Indication: IMMUNOSUPPRESSION
     Dosage: 10MG/KG/D, 2 DIVIDED DOS, DOSES TO D5, THEN ADJUST
  2. EC-MYCOPHENOLATE SODIUM [Concomitant]
  3. BASILIXIMAB [Concomitant]
  4. CORTICOSTERIODS [Concomitant]

REACTIONS (1)
  - THYROID CANCER [None]
